FAERS Safety Report 10060870 (Version 2)
Quarter: 2014Q2

REPORT INFORMATION
  Report Type: Report from Study
  Country: GB (occurrence: GB)
  Receive Date: 20140404
  Receipt Date: 20140624
  Transmission Date: 20141212
  Serious: Yes (Other)
  Sender: FDA-Public Use
  Company Number: GB-MERCK-1404GBR000424

PATIENT
  Age: 48 Year
  Sex: Female
  Weight: 65.2 kg

DRUGS (4)
  1. TEMOZOLOMIDE [Suspect]
     Indication: GLIOMA
     Dosage: 150-200 MG/M2/D, D1-5 (EVERY 28 DAYS)
     Route: 048
     Dates: start: 20140224, end: 20140228
  2. KEPRA [Concomitant]
     Indication: CONVULSION
     Dosage: 500 MG, BID
     Route: 048
  3. KEPRA [Concomitant]
     Indication: OLIGOASTROCYTOMA
  4. DEXAMETHASONE TABLETS BP  2.0MG [Concomitant]
     Indication: HEADACHE
     Dosage: 2 MG, BID
     Route: 048
     Dates: start: 20140221

REACTIONS (1)
  - Invasive ductal breast carcinoma [Not Recovered/Not Resolved]
